FAERS Safety Report 21126218 (Version 1)
Quarter: 2022Q3

REPORT INFORMATION
  Report Type: Spontaneous
  Country: US (occurrence: None)
  Receive Date: 20220724
  Receipt Date: 20220724
  Transmission Date: 20221026
  Serious: Yes (Hospitalization, Other)
  Sender: FDA-Public Use
  Company Number: None

PATIENT
  Age: 40 Year
  Sex: Female
  Weight: 56.25 kg

DRUGS (1)
  1. DIHYDROERGOTAMINE MESYLATE [Suspect]
     Active Substance: DIHYDROERGOTAMINE MESYLATE
     Indication: Migraine
     Dosage: OTHER STRENGTH : UNKNOWN;?OTHER QUANTITY : 1 INJECTION(S);?FREQUENCY : DAILY;?
     Route: 042
     Dates: start: 20220714, end: 20220714

REACTIONS (13)
  - Head discomfort [None]
  - Burning sensation [None]
  - Eye irritation [None]
  - Chest pain [None]
  - Renal replacement therapy [None]
  - Hypersensitivity [None]
  - Drug hypersensitivity [None]
  - Drooling [None]
  - Dissociation [None]
  - Restless legs syndrome [None]
  - Throat tightness [None]
  - Screaming [None]
  - Aphasia [None]

NARRATIVE: CASE EVENT DATE: 20220714
